FAERS Safety Report 19439031 (Version 3)
Quarter: 2021Q3

REPORT INFORMATION
  Report Type: Other
  Country: US (occurrence: US)
  Receive Date: 20210619
  Receipt Date: 20210908
  Transmission Date: 20211014
  Serious: No
  Sender: FDA-Public Use
  Company Number: US-ROCHE-2725838

PATIENT
  Age: 55 Year
  Sex: Female
  Weight: 79.9 kg

DRUGS (10)
  1. RIZATRIPTAN. [Concomitant]
     Active Substance: RIZATRIPTAN
     Indication: MIGRAINE
     Route: 048
  2. PHENOBARBITAL. [Concomitant]
     Active Substance: PHENOBARBITAL
  3. OCREVUS [Suspect]
     Active Substance: OCRELIZUMAB
     Indication: MULTIPLE SCLEROSIS
     Dosage: (PRESCRIBED AS 300 MG ON DAY 1 AND DAY 15 )
     Route: 042
     Dates: start: 20201117
  4. CELECOXIB. [Concomitant]
     Active Substance: CELECOXIB
  5. DULOXETINE. [Concomitant]
     Active Substance: DULOXETINE
  6. CODEINE [Concomitant]
     Active Substance: CODEINE
  7. ERYTHROMYCIN. [Concomitant]
     Active Substance: ERYTHROMYCIN
  8. KEFLEX [Concomitant]
     Active Substance: CEPHALEXIN
  9. LISINOPRIL. [Concomitant]
     Active Substance: LISINOPRIL
  10. ULTRAM [Concomitant]
     Active Substance: TRAMADOL HYDROCHLORIDE

REACTIONS (5)
  - Back pain [Unknown]
  - Influenza [Unknown]
  - Cough [Unknown]
  - Vertigo [Unknown]
  - Migraine [Not Recovered/Not Resolved]

NARRATIVE: CASE EVENT DATE: 20201117
